FAERS Safety Report 8718838 (Version 2)
Quarter: 2012Q4

REPORT INFORMATION
  Report Type: 
  Country: US (occurrence: US)
  Receive Date: 20120810
  Receipt Date: 20121108
  Transmission Date: 20130627
  Serious: Yes (Other)
  Sender: FDA-Public Use
  Company Number: US-RB-043120-12

PATIENT
  Age: 0 None
  Sex: Female

DRUGS (4)
  1. SUBUTEX [Suspect]
     Indication: DRUG DEPENDENCE
     Route: 064
     Dates: start: 201110, end: 20120727
  2. ZANTAC [Suspect]
     Indication: GASTROOESOPHAGEAL REFLUX DISEASE
     Route: 064
     Dates: end: 20120727
  3. PRENATAL VITAMINS [Suspect]
     Indication: PREGNANCY
     Dosage: Unknown dosage
     Route: 064
     Dates: end: 20120727
  4. PHENERGAN [Suspect]
     Indication: NAUSEA
     Dosage: PRN - as needed dosage
     Route: 064
     Dates: end: 20120727

REACTIONS (3)
  - Low birth weight baby [Unknown]
  - Drug withdrawal syndrome neonatal [Not Recovered/Not Resolved]
  - Foetal exposure during pregnancy [Recovered/Resolved]
